FAERS Safety Report 10516432 (Version 1)
Quarter: 2014Q4

REPORT INFORMATION
  Report Type: Spontaneous
  Country: US (occurrence: None)
  Receive Date: 20141003
  Receipt Date: 20141003
  Transmission Date: 20150528
  Serious: Yes (Other)
  Sender: FDA-Public Use
  Company Number: 1320610

PATIENT
  Age: 54 Year
  Sex: Male

DRUGS (6)
  1. TELAPREVIR [Suspect]
     Active Substance: TELAPREVIR
     Indication: HEPATITIS C
     Dosage: TWO TABLETS EVERY 8 HOURLY, FOR THE FIRST 12 WEEKS (1 IN 1 D)
  2. RITONAVIR (RITONAVIR) [Concomitant]
     Active Substance: RITONAVIR
  3. RIBAVIRIN. [Suspect]
     Active Substance: RIBAVIRIN
     Indication: HEPATITIS C
     Dosage: WEIGHT-BASED RIBAVIRIN EXCEPT IN PATIENTS WITH COEXISTENT HEMATOLOGIC CONDTIONS IN WHO FIXED RIBAVIRIN DOSE OF 800MG FOR A TOTAL OF 48WEEKS
  4. PEG-INTERFERON ALFA 2A [Suspect]
     Active Substance: PEGINTERFERON ALFA-2A
     Indication: HEPATITIS C
     Dosage: SINGLE INJECTION, 1 IN 1 WK
     Route: 058
  5. RALTEGRAVIR (RALTEGRAVIR) [Concomitant]
     Active Substance: RALTEGRAVIR
  6. MARAVIROC (MARAVIROC) [Concomitant]

REACTIONS (1)
  - Hepatic failure [None]
